FAERS Safety Report 21843638 (Version 1)
Quarter: 2023Q1

REPORT INFORMATION
  Report Type: Report from Study
  Country: EG (occurrence: EG)
  Receive Date: 20230110
  Receipt Date: 20230110
  Transmission Date: 20230417
  Serious: Yes (Other)
  Sender: FDA-Public Use
  Company Number: EG-002147023-NVSC2022EG042263

PATIENT
  Age: 46 Year
  Sex: Female

DRUGS (9)
  1. KISQALI [Suspect]
     Active Substance: RIBOCICLIB
     Indication: Breast cancer metastatic
     Dosage: 3 DOSAGE FORM, QD (3 TABLETS AT ONCE PER DAY FOR 3 WEEKS THEN 1 WEEK OFF)
     Route: 048
     Dates: start: 201911
  2. KISQALI [Suspect]
     Active Substance: RIBOCICLIB
     Dosage: 3 DOSAGE FORM, QD (3 TABLETS PER DAY FOR 3 WEEKS THEN ONE WEEK OFF)
     Route: 048
     Dates: start: 20200927, end: 20220630
  3. FEMARA [Suspect]
     Active Substance: LETROZOLE
     Indication: Breast cancer metastatic
     Dosage: 1 DOSAGE FORM (ONE TABLET AT NIGHT)
     Route: 048
     Dates: start: 201911, end: 20220630
  4. ZOLADEX [Concomitant]
     Active Substance: GOSERELIN ACETATE
     Indication: Breast cancer metastatic
     Dosage: 1 DOSAGE FORM, QMO
     Route: 065
     Dates: start: 2019
  5. CONCOR 5 PLUS [Concomitant]
     Indication: Hypertension
     Dosage: 1 DOSAGE FORM (ONE TABLET IN THE MORNING)
     Route: 065
     Dates: start: 2009
  6. ALFACALCIDOL [Concomitant]
     Active Substance: ALFACALCIDOL
     Indication: Immune disorder prophylaxis
     Dosage: 1 DOSAGE FORM, QD
     Route: 065
     Dates: start: 2019
  7. BONE CARE [Concomitant]
     Active Substance: ATRACTYLODES LANCEA ROOT
     Indication: Immune disorder prophylaxis
     Dosage: 1 DOSAGE FORM, QD
     Route: 065
     Dates: start: 2019
  8. CALCIUM [Concomitant]
     Active Substance: CALCIUM
     Indication: Immune disorder prophylaxis
     Dosage: 1 DOSAGE FORM, QD
     Route: 065
     Dates: start: 2019
  9. LARYPRO [Concomitant]
     Indication: Oropharyngeal pain
     Dosage: UNK UNK, QID
     Route: 065
     Dates: start: 20220219

REACTIONS (8)
  - Recurrent cancer [Unknown]
  - White blood cell count decreased [Recovering/Resolving]
  - Decreased immune responsiveness [Recovering/Resolving]
  - Vitamin D decreased [Unknown]
  - Blood bilirubin increased [Unknown]
  - Anaemia [Recovering/Resolving]
  - Oropharyngeal pain [Recovering/Resolving]
  - Drug ineffective [Unknown]

NARRATIVE: CASE EVENT DATE: 20191101
